FAERS Safety Report 15787361 (Version 1)
Quarter: 2019Q1

REPORT INFORMATION
  Report Type: Spontaneous
  Country: BR (occurrence: BR)
  Receive Date: 20190103
  Receipt Date: 20190103
  Transmission Date: 20190417
  Serious: Yes (Hospitalization, Other)
  Sender: FDA-Public Use
  Company Number: BR-SA-2017SA162783

PATIENT
  Age: 29 Year
  Sex: Female
  Weight: 62 kg

DRUGS (1)
  1. CLEXANE [Suspect]
     Active Substance: ENOXAPARIN SODIUM
     Indication: HYPERCOAGULATION
     Dosage: 40MG / ONCE PER DAY
     Dates: start: 201706, end: 20181228

REACTIONS (5)
  - Amniocentesis abnormal [Unknown]
  - Hepatic enzyme abnormal [Recovered/Resolved]
  - Abdominal distension [Unknown]
  - Exposure during pregnancy [Unknown]
  - Caesarean section [Unknown]
